FAERS Safety Report 12006030 (Version 1)
Quarter: 2016Q1

REPORT INFORMATION
  Report Type: Spontaneous
  Country: GB (occurrence: GB)
  Receive Date: 20160205
  Receipt Date: 20160205
  Transmission Date: 20160526
  Serious: Yes (Hospitalization)
  Sender: FDA-Public Use
  Company Number: GB-ROCHE-1650359

PATIENT
  Sex: Female

DRUGS (1)
  1. HERCEPTIN [Suspect]
     Active Substance: TRASTUZUMAB
     Indication: PRODUCT USED FOR UNKNOWN INDICATION
     Route: 042

REACTIONS (15)
  - Dyspnoea [Unknown]
  - Stress [Unknown]
  - Nausea [Unknown]
  - Dizziness [Unknown]
  - Circulatory collapse [Unknown]
  - Hypoaesthesia [Unknown]
  - Fall [Unknown]
  - Nasopharyngitis [Unknown]
  - Anxiety [Unknown]
  - Insomnia [Unknown]
  - Arthralgia [Unknown]
  - Myalgia [Unknown]
  - Blood pressure increased [Unknown]
  - Dry mouth [Unknown]
  - Malaise [Unknown]
